FAERS Safety Report 5431259-X (Version None)
Quarter: 2007Q3

REPORT INFORMATION
  Report Type: 
  Country: None (occurrence: None)
  Receive Date: 20070830
  Receipt Date: 20070822
  Transmission Date: 20080115
  Serious: Yes (Hospitalization, Other)
  Sender: FDA-Public Use
  Company Number: US-ROCHE-479450

PATIENT
  Age: 38 Year
  Sex: Male
  Weight: 68 kg

DRUGS (17)
  1. ACCUTANE [Suspect]
     Route: 048
     Dates: start: 19980910, end: 19981102
  2. ACCUTANE [Suspect]
     Route: 048
     Dates: start: 19981102, end: 19990422
  3. PREVACID [Concomitant]
  4. LEVSIN [Concomitant]
     Indication: NAUSEA
  5. NORVASC [Concomitant]
     Dates: start: 19890101
  6. MOBIC [Concomitant]
     Indication: ARTHRITIS
  7. LYRICA [Concomitant]
     Indication: ARTHRITIS
  8. PAMELOR [Concomitant]
     Indication: ANXIETY
  9. ULTRAM [Concomitant]
     Indication: PAIN
  10. CELEBREX [Concomitant]
     Dates: start: 19990301
  11. AXID [Concomitant]
  12. ORUVAIL [Concomitant]
  13. PROCARDIA [Concomitant]
     Dates: start: 19890101
  14. CEFZIL [Concomitant]
     Dates: start: 19990507
  15. ASPIRIN [Concomitant]
     Dosage: REPORTED AS ACEPTAMINOPHEN/ASCRIPTIN.  ROUTE AND FORMULATION REPORTED AS NASAL SPRAY.
     Dates: start: 19990507
  16. KLONOPIN [Concomitant]
  17. BIAXIN [Concomitant]
     Dates: start: 19991108

REACTIONS (18)
  - ABDOMINAL PAIN [None]
  - ANXIETY [None]
  - BILIARY DYSKINESIA [None]
  - COLITIS [None]
  - CROHN'S DISEASE [None]
  - DIVERTICULITIS [None]
  - DUODENITIS [None]
  - DYSPEPSIA [None]
  - GASTRITIS [None]
  - GASTROOESOPHAGEAL REFLUX DISEASE [None]
  - HAEMATOCHEZIA [None]
  - HIATUS HERNIA [None]
  - ILEUS [None]
  - INFLAMMATORY BOWEL DISEASE [None]
  - INTESTINAL OBSTRUCTION [None]
  - IRRITABLE BOWEL SYNDROME [None]
  - POLYP [None]
  - RECTAL HAEMORRHAGE [None]
